FAERS Safety Report 5728890-0 (Version None)
Quarter: 2008Q2

REPORT INFORMATION
  Report Type: 
  Country: None (occurrence: None)
  Receive Date: 20080506
  Receipt Date: 20080429
  Transmission Date: 20081010
  Serious: Yes (Hospitalization)
  Sender: FDA-Public Use
  Company Number: FR-ABBOTT-08P-056-0449708-00

PATIENT
  Sex: Male

DRUGS (3)
  1. TARKA [Suspect]
     Indication: HYPERTENSION
     Route: 048
     Dates: start: 20071201, end: 20080229
  2. ACETYLSALICYLATE LYSINE [Concomitant]
     Indication: DRUG USE FOR UNKNOWN INDICATION
     Dosage: 75 MG DAILY (LONG TERM TREATMENT)
     Route: 048
  3. DUTASTERIDE [Concomitant]
     Indication: PROSTATECTOMY
     Dosage: 0.5 MG DAILY (LONG TERM TREATMENT)
     Route: 048

REACTIONS (10)
  - EYE ROLLING [None]
  - FALL [None]
  - HYPOTENSION [None]
  - LOSS OF CONSCIOUSNESS [None]
  - MALAISE [None]
  - NAUSEA [None]
  - PALLOR [None]
  - SUTURE INSERTION [None]
  - URINARY INCONTINENCE [None]
  - VOMITING [None]
